FAERS Safety Report 9164494 (Version 2)
Quarter: 2013Q3

REPORT INFORMATION
  Report Type: Spontaneous
  Country: IT (occurrence: None)
  Receive Date: 20130226
  Receipt Date: 20130729
  Transmission Date: 20140515
  Serious: Yes (Other)
  Sender: FDA-Public Use
  Company Number: AUR-APL-2013-01661

PATIENT
  Age: 55 Year
  Sex: Female
  Weight: 61 kg

DRUGS (1)
  1. METFORMIN [Suspect]
     Indication: DIABETES MELLITUS
     Dosage: 3 DOAGES FORMS (3 DOSAGES FORMS. 1 IN 1D), ORAL
     Route: 048
     Dates: start: 20120911, end: 20120920

REACTIONS (2)
  - Dysentery [None]
  - Quality of life decreased [None]
